FAERS Safety Report 23518841 (Version 1)
Quarter: 2024Q1

REPORT INFORMATION
  Report Type: Spontaneous
  Country: SK (occurrence: SK)
  Receive Date: 20240213
  Receipt Date: 20240213
  Transmission Date: 20240409
  Serious: Yes (Other)
  Sender: FDA-Public Use
  Company Number: SK-002147023-NVSC2024SK026570

PATIENT

DRUGS (1)
  1. RUXOLITINIB [Suspect]
     Active Substance: RUXOLITINIB
     Indication: Polycythaemia vera
     Dosage: 10 MG, BID
     Route: 065
     Dates: start: 202210

REACTIONS (5)
  - Cervix carcinoma [Unknown]
  - Fall [Unknown]
  - Myeloproliferative neoplasm [Unknown]
  - Joint injury [Unknown]
  - Atrial flutter [Unknown]

NARRATIVE: CASE EVENT DATE: 20230101
